FAERS Safety Report 22001711 (Version 1)
Quarter: 2023Q1

REPORT INFORMATION
  Report Type: Report from Study
  Country: CN (occurrence: CN)
  Receive Date: 20230216
  Receipt Date: 20230216
  Transmission Date: 20230418
  Serious: Yes (Hospitalization)
  Sender: FDA-Public Use
  Company Number: CN-MIRATI-MT2023CT03490

PATIENT

DRUGS (3)
  1. ADAGRASIB [Suspect]
     Active Substance: ADAGRASIB
     Indication: Non-small cell lung cancer
     Dosage: 600 MG, BID
     Route: 048
     Dates: start: 20221215, end: 20230205
  2. ADAGRASIB [Suspect]
     Active Substance: ADAGRASIB
     Dosage: 600 MG, BID
     Route: 048
     Dates: start: 20230213
  3. IBUPROFEN [Concomitant]
     Active Substance: IBUPROFEN
     Indication: Pyrexia
     Dosage: 0.3 G
     Route: 048
     Dates: start: 20230205, end: 20230213

REACTIONS (1)
  - Myelosuppression [Recovered/Resolved with Sequelae]

NARRATIVE: CASE EVENT DATE: 20230207
